FAERS Safety Report 23757282 (Version 1)
Quarter: 2024Q2

REPORT INFORMATION
  Report Type: Spontaneous
  Country: US (occurrence: US)
  Receive Date: 20240418
  Receipt Date: 20240418
  Transmission Date: 20240716
  Serious: Yes (Hospitalization)
  Sender: FDA-Public Use
  Company Number: US-BRISTOL-MYERS SQUIBB COMPANY-2024-057598

PATIENT
  Age: 70 Year
  Sex: Male

DRUGS (1)
  1. POMALYST [Suspect]
     Active Substance: POMALIDOMIDE
     Indication: Dementia
     Dosage: TAKE 1 CAPSULE BY MOUTH DAILY ON DAYS 1-21 WITH OR WITHOUT FOOD.
     Route: 048

REACTIONS (1)
  - Hospitalisation [Recovered/Resolved]
